FAERS Safety Report 9182812 (Version 2)
Quarter: 2014Q1

REPORT INFORMATION
  Report Type: Spontaneous
  Country: US (occurrence: US)
  Receive Date: 20130322
  Receipt Date: 20140318
  Transmission Date: 20141002
  Serious: Yes (Life-Threatening)
  Sender: FDA-Public Use
  Company Number: US-BRISTOL-MYERS SQUIBB COMPANY-17188582

PATIENT
  Age: 50 Year
  Sex: Female

DRUGS (6)
  1. ERBITUX [Suspect]
     Indication: COLORECTAL CANCER
     Dosage: 500MG/M2?INTER ON 04-DEC-2012
     Route: 042
     Dates: start: 20121204
  2. OXYCODONE [Concomitant]
     Route: 048
  3. ATIVAN [Concomitant]
     Route: 048
  4. ATIVAN [Concomitant]
     Route: 048
  5. PRILOSEC [Concomitant]
     Route: 048
  6. MIRALAX [Concomitant]
     Route: 048

REACTIONS (1)
  - Hypersensitivity [Unknown]
